FAERS Safety Report 18414398 (Version 1)
Quarter: 2020Q4

REPORT INFORMATION
  Report Type: Spontaneous
  Country: US (occurrence: US)
  Receive Date: 20201022
  Receipt Date: 20201022
  Transmission Date: 20210114
  Serious: Yes (Hospitalization)
  Sender: FDA-Public Use
  Company Number: None

PATIENT
  Age: 74 Year
  Sex: Male
  Weight: 113 kg

DRUGS (1)
  1. ALLOPURINOL (ALLOPURINOL 300MG TAB) [Suspect]
     Active Substance: ALLOPURINOL
     Indication: GOUT
     Dosage: ?          OTHER DOSE:1 TAB;?
     Route: 048
     Dates: start: 20200122, end: 20200802

REACTIONS (7)
  - Pruritus [None]
  - Eosinophilia [None]
  - Nausea [None]
  - Vomiting [None]
  - Urticaria [None]
  - Oedema peripheral [None]
  - Rash [None]

NARRATIVE: CASE EVENT DATE: 20200817
